FAERS Safety Report 4557759-2 (Version None)
Quarter: 2005Q1

REPORT INFORMATION
  Report Type: 
  Country: None (occurrence: None)
  Receive Date: 20050103
  Receipt Date: 20040910
  Transmission Date: 20050727
  Serious: Yes (Other)
  Sender: FDA-Public Use
  Company Number: 2004UW16266

PATIENT
  Age: 75 Year
  Sex: Female
  Weight: 65.7716 kg

DRUGS (4)
  1. CRESTOR [Suspect]
     Indication: BLOOD CHOLESTEROL INCREASED
     Dosage: 10 MG QD PO
     Route: 048
     Dates: start: 20040201, end: 20040301
  2. SYNTHROID [Concomitant]
  3. CORGARD [Concomitant]
  4. ALTACE [Concomitant]

REACTIONS (4)
  - ASTHENIA [None]
  - FLATULENCE [None]
  - VERTIGO [None]
  - VISUAL DISTURBANCE [None]
